FAERS Safety Report 4888818-2 (Version None)
Quarter: 2005Q4

REPORT INFORMATION
  Report Type: 
  Country: None (occurrence: None)
  Receive Date: 20051215
  Receipt Date: 20050628
  Transmission Date: 20060501
  Serious: Yes (Other)
  Sender: FDA-Public Use
  Company Number: 2005087864

PATIENT
  Age: 34 Year
  Sex: Male

DRUGS (2)
  1. BEXTRA [Suspect]
     Indication: JOINT INJURY
     Dosage: 40 MG (20 MG, 2 IN 1 D), ORAL
     Route: 048
     Dates: start: 20040801, end: 20050201
  2. ALL OTHER THERAPEUTIC PRODUCTS (ALL OTHER THERAPEUTIC PRODUCTS) [Suspect]
     Indication: ILL-DEFINED DISORDER

REACTIONS (9)
  - DIZZINESS [None]
  - HYPERAESTHESIA [None]
  - HYPERTENSION [None]
  - OEDEMA PERIPHERAL [None]
  - PRURITUS [None]
  - RASH [None]
  - RASH MACULAR [None]
  - RASH PAPULAR [None]
  - THERAPEUTIC RESPONSE DECREASED [None]
